FAERS Safety Report 9981133 (Version 1)
Quarter: 2014Q1

REPORT INFORMATION
  Report Type: Spontaneous
  Country: CD (occurrence: CD)
  Receive Date: 20140307
  Receipt Date: 20140307
  Transmission Date: 20141002
  Serious: Yes (Hospitalization, Other)
  Sender: FDA-Public Use
  Company Number: CD-009507513-1402COD012137

PATIENT
  Age: 43 Year
  Sex: Male

DRUGS (1)
  1. IVERMECTIN [Suspect]
     Indication: ONCHOCERCIASIS
     Dosage: 4 DF, FREQUENCY UNKNOWN
     Route: 048
     Dates: start: 20131129

REACTIONS (5)
  - Coma [Recovered/Resolved]
  - Asthenia [Recovered/Resolved]
  - Nuchal rigidity [Recovered/Resolved]
  - Pyrexia [Recovered/Resolved]
  - Nervous system disorder [Recovered/Resolved]
